FAERS Safety Report 20968630 (Version 4)
Quarter: 2024Q1

REPORT INFORMATION
  Report Type: Report from Study
  Country: CA (occurrence: CA)
  Receive Date: 20220616
  Receipt Date: 20240118
  Transmission Date: 20240410
  Serious: Yes (Hospitalization, Other)
  Sender: FDA-Public Use
  Company Number: CA-HLS-202201122

PATIENT
  Age: 62 Year
  Sex: Male

DRUGS (7)
  1. CLOZARIL [Suspect]
     Active Substance: CLOZAPINE
     Indication: Schizophrenia
     Route: 048
     Dates: start: 19910107, end: 20240115
  2. SITAGLIPTIN PHOSPHATE [Concomitant]
     Active Substance: SITAGLIPTIN PHOSPHATE
     Indication: Product used for unknown indication
     Route: 048
     Dates: end: 20220512
  3. ROSUVASTATIN CALCIUM [Concomitant]
     Active Substance: ROSUVASTATIN CALCIUM
     Indication: Product used for unknown indication
     Route: 048
     Dates: end: 20220512
  4. METFORMIN [Concomitant]
     Active Substance: METFORMIN HYDROCHLORIDE
     Indication: Product used for unknown indication
     Dosage: METFORMIN ER -500MG
     Route: 048
     Dates: end: 20220512
  5. LORAZEPAM [Concomitant]
     Active Substance: LORAZEPAM
     Indication: Product used for unknown indication
     Route: 060
  6. EMPAGLIFLOZIN [Concomitant]
     Active Substance: EMPAGLIFLOZIN
     Indication: Product used for unknown indication
     Route: 048
  7. Telmisartan-amlodipine [Concomitant]
     Indication: Product used for unknown indication
     Dosage: 40MG/10MG
     Route: 048

REACTIONS (11)
  - Acute kidney injury [Unknown]
  - Back pain [Unknown]
  - Mobility decreased [Unknown]
  - Blood immunoglobulin G increased [Unknown]
  - Fall [Unknown]
  - Plasma cell myeloma [Unknown]
  - Normocytic anaemia [Unknown]
  - Pancytopenia [Unknown]
  - Hypercalcaemia [Unknown]
  - White blood cell count decreased [Unknown]
  - Weight decreased [Unknown]
